FAERS Safety Report 14586715 (Version 1)
Quarter: 2018Q1

REPORT INFORMATION
  Report Type: Other
  Country: DE (occurrence: DE)
  Receive Date: 20180301
  Receipt Date: 20180301
  Transmission Date: 20180509
  Serious: Yes (Hospitalization, Other)
  Sender: FDA-Public Use
  Company Number: DE-GLENMARK PHARMACEUTICALS-2018GMK032604

PATIENT

DRUGS (4)
  1. VALPROIC ACID / SODIUM VALPROATE [Suspect]
     Active Substance: VALPROIC ACID
     Indication: SEIZURE
     Dosage: 2500 MG, UNK
     Route: 065
  2. CARBAMAZEPIN [Suspect]
     Active Substance: CARBAMAZEPINE
     Indication: SEIZURE
     Dosage: 1600 MG, UNK
     Route: 065
  3. TOPIRAMAT [Suspect]
     Active Substance: TOPIRAMATE
     Indication: SEIZURE
     Dosage: 200 MG, UNK
     Route: 065
  4. CLOBAZAM [Suspect]
     Active Substance: CLOBAZAM
     Indication: SEIZURE
     Dosage: 35 MG, UNK
     Route: 065

REACTIONS (10)
  - Disturbance in attention [Recovered/Resolved]
  - Nystagmus [Recovered/Resolved]
  - Bradyphrenia [Recovered/Resolved]
  - Encephalopathy [Recovered/Resolved]
  - Seizure [Recovering/Resolving]
  - Somnolence [Recovered/Resolved]
  - Gait disturbance [Recovered/Resolved]
  - Fall [Recovered/Resolved]
  - Diplopia [Recovered/Resolved]
  - Hyperammonaemia [Recovered/Resolved]
